FAERS Safety Report 6408602-8 (Version None)
Quarter: 2009Q4

REPORT INFORMATION
  Report Type: 
  Country: None (occurrence: None)
  Receive Date: 20091019
  Receipt Date: 20091008
  Transmission Date: 20100525
  Serious: Yes (Hospitalization)
  Sender: FDA-Public Use
  Company Number: URSO-2009-107

PATIENT
  Age: 71 Year
  Sex: Male

DRUGS (5)
  1. URSODIOL [Suspect]
     Indication: LIVER DISORDER
     Dosage: 300MG ORAL
     Route: 048
     Dates: start: 20090423, end: 20090731
  2. CYANAMIDE (CYANAMIDE) [Suspect]
     Indication: ALCOHOLISM
     Dosage: 15ML ORAL
     Route: 048
     Dates: start: 20090423, end: 20090731
  3. VERAPAMIL HYDROCHLORIDE [Suspect]
     Dosage: 120MG ORAL
     Route: 048
     Dates: start: 20070201, end: 20090804
  4. PREDNISOLONE [Suspect]
     Indication: ERYTHEMA MULTIFORME
     Dosage: 20MG INCREASED TO 30MG
     Dates: start: 20090731
  5. LANIRAPID (METILDIGOXIN) [Concomitant]

REACTIONS (2)
  - ERYTHEMA MULTIFORME [None]
  - ESCHERICHIA SEPSIS [None]
